APPROVED DRUG PRODUCT: MATULANE
Active Ingredient: PROCARBAZINE HYDROCHLORIDE
Strength: EQ 50MG BASE
Dosage Form/Route: CAPSULE;ORAL
Application: N016785 | Product #001
Applicant: LEADIANT BIOSCIENCES INC
Approved: Approved Prior to Jan 1, 1982 | RLD: Yes | RS: Yes | Type: RX